FAERS Safety Report 8515087-4 (Version None)
Quarter: 2012Q3

REPORT INFORMATION
  Report Type: 
  Country: None (occurrence: None)
  Receive Date: 20120717
  Receipt Date: 20120705
  Transmission Date: 20120928
  Serious: Yes (Hospitalization)
  Sender: FDA-Public Use
  Company Number: FR-JNJFOC-20120706771

PATIENT
  Age: 39 Year
  Sex: Female

DRUGS (13)
  1. LOXAPINE HCL [Suspect]
     Indication: SCHIZOPHRENIA
     Route: 030
     Dates: end: 20100222
  2. CLOPIXOL [Suspect]
     Route: 048
     Dates: start: 20100114, end: 20100222
  3. MEPRONIZINE [Concomitant]
     Indication: PRODUCT USED FOR UNKNOWN INDICATION
     Route: 065
     Dates: start: 20091022, end: 20100224
  4. POLYETHYLENE GLYCOL [Concomitant]
     Indication: PRODUCT USED FOR UNKNOWN INDICATION
     Route: 065
     Dates: start: 20100216, end: 20100222
  5. HEPTAMINOL HYDROCHLORIDE [Suspect]
     Indication: PRODUCT USED FOR UNKNOWN INDICATION
     Route: 048
     Dates: end: 20100223
  6. CLOPIXOL [Suspect]
     Indication: SCHIZOPHRENIA
     Route: 030
     Dates: start: 20100209, end: 20100222
  7. CLOPIXOL [Suspect]
     Route: 030
     Dates: start: 20100209, end: 20100222
  8. LANSOPRAZOLE [Concomitant]
     Indication: PRODUCT USED FOR UNKNOWN INDICATION
     Route: 065
     Dates: start: 20091228, end: 20100222
  9. ACETAMINOPHEN AND TRAMADOL HCL [Suspect]
     Indication: PRODUCT USED FOR UNKNOWN INDICATION
     Route: 048
     Dates: start: 20100114, end: 20100222
  10. CLOZAPINE [Suspect]
     Indication: SCHIZOPHRENIA
     Route: 048
     Dates: start: 20100125, end: 20100218
  11. PARKINANE LP [Concomitant]
     Indication: EXTRAPYRAMIDAL DISORDER
     Route: 065
     Dates: start: 20100201, end: 20100223
  12. EQUANIL [Suspect]
     Indication: PRODUCT USED FOR UNKNOWN INDICATION
     Route: 048
     Dates: start: 20100114, end: 20100224
  13. CLOPIXOL [Suspect]
     Route: 048
     Dates: start: 20100114, end: 20100222

REACTIONS (1)
  - NEUTROPENIA [None]
